FAERS Safety Report 7929022-0 (Version None)
Quarter: 2011Q4

REPORT INFORMATION
  Report Type: 
  Country: None (occurrence: None)
  Receive Date: 20111118
  Receipt Date: 20111115
  Transmission Date: 20120403
  Serious: Yes (Death, Other)
  Sender: FDA-Public Use
  Company Number: CN-ROCHE-1013441

PATIENT

DRUGS (1)
  1. MYCOPHENOLATE MOFETIL (CELLCEPT) [Suspect]
     Indication: LIVER TRANSPLANT

REACTIONS (3)
  - BACTERIAL INFECTION [None]
  - MULTI-ORGAN FAILURE [None]
  - FUNGAL INFECTION [None]
